FAERS Safety Report 24657550 (Version 2)
Quarter: 2025Q1

REPORT INFORMATION
  Report Type: Report from Study
  Country: US (occurrence: US)
  Receive Date: 20241125
  Receipt Date: 20250306
  Transmission Date: 20250409
  Serious: Yes (Death, Other)
  Sender: ACADIA PHARMACEUTICALS
  Company Number: US-ACADIA PHARMACEUTICALS INC.-ACA-2024-PIM-007292

PATIENT
  Age: 79 Year
  Sex: Male

DRUGS (16)
  1. NUPLAZID [Suspect]
     Active Substance: PIMAVANSERIN TARTRATE
     Indication: Parkinson^s disease
     Dosage: 34 MILLIGRAM, QD
     Route: 048
     Dates: start: 2022, end: 20240716
  2. CENTRUM SILVER [ASCORBIC ACID;CALCIUM;MINERALS NOS;RETINOL;TOCOPHERYL [Concomitant]
  3. ROPINIROLE [Concomitant]
     Active Substance: ROPINIROLE
  4. ALLOPURINOL [Concomitant]
     Active Substance: ALLOPURINOL
  5. ENTACAPONE [Concomitant]
     Active Substance: ENTACAPONE
  6. COENZYME Q10 [TOCOPHERYL ACETATE;UBIDECARENONE] [Concomitant]
  7. LISINOPRIL [Concomitant]
     Active Substance: LISINOPRIL
  8. AMANTADINE [Concomitant]
     Active Substance: AMANTADINE
  9. SELEGILINE [Concomitant]
     Active Substance: SELEGILINE
     Dates: start: 2022
  10. VITAMIN D2 [Concomitant]
     Active Substance: ERGOCALCIFEROL
  11. CARBIDOPA\LEVODOPA [Concomitant]
     Active Substance: CARBIDOPA\LEVODOPA
     Dates: start: 201403
  12. LOVASTATIN [Concomitant]
     Active Substance: LOVASTATIN
  13. RYTARY [Concomitant]
     Active Substance: CARBIDOPA\LEVODOPA
  14. RIVASTIGMINE [Concomitant]
     Active Substance: RIVASTIGMINE
  15. AMLODIPINE BESYLATE [Concomitant]
     Active Substance: AMLODIPINE BESYLATE
  16. REQUIP [Concomitant]
     Active Substance: ROPINIROLE HYDROCHLORIDE
     Dates: start: 201111

REACTIONS (1)
  - Death [Fatal]

NARRATIVE: CASE EVENT DATE: 20240716
